FAERS Safety Report 24318008 (Version 1)
Quarter: 2024Q3

REPORT INFORMATION
  Report Type: Spontaneous
  Country: IT (occurrence: IT)
  Receive Date: 20240913
  Receipt Date: 20240913
  Transmission Date: 20241017
  Serious: Yes (Hospitalization)
  Sender: FRESENIUS KABI
  Company Number: None

PATIENT
  Age: 23 Year
  Sex: Female

DRUGS (3)
  1. DIETARY SUPPLEMENT [Suspect]
     Active Substance: DIETARY SUPPLEMENT
     Indication: Parenteral nutrition
     Dosage: 1 BAG/DAY WITHOUT LIPIDS VIA PICC IN 24H AT 50ML/H AND THEN 70ML/H
     Route: 042
     Dates: start: 20240823, end: 20240827
  2. ENOXAPARIN [Concomitant]
     Active Substance: ENOXAPARIN
     Indication: Product used for unknown indication
     Dosage: 2000 UI X2/DAY
     Route: 058
  3. PANTOPRAZOLE [Concomitant]
     Active Substance: PANTOPRAZOLE
     Indication: Product used for unknown indication
     Dosage: 40 MG 1 TABLET/DAY
     Route: 048

REACTIONS (1)
  - Catheter site thrombosis [Recovering/Resolving]

NARRATIVE: CASE EVENT DATE: 20240827
